FAERS Safety Report 4489946-6 (Version None)
Quarter: 2004Q4

REPORT INFORMATION
  Report Type: 
  Country: None (occurrence: None)
  Receive Date: 20041101
  Receipt Date: 20041028
  Transmission Date: 20050328
  Serious: Yes (Other)
  Sender: FDA-Public Use
  Company Number: US-GLAXOSMITHKLINE-A0531767A

PATIENT
  Age: 70 Year
  Sex: Female

DRUGS (10)
  1. AVANDIA [Suspect]
     Indication: DIABETES MELLITUS NON-INSULIN-DEPENDENT
     Dosage: 8MG PER DAY
     Route: 048
  2. METFORMIN HCL [Concomitant]
     Indication: DRUG USE FOR UNKNOWN INDICATION
  3. SPIRONOLACTONE [Concomitant]
     Indication: DRUG USE FOR UNKNOWN INDICATION
  4. TARKA [Concomitant]
     Indication: DRUG USE FOR UNKNOWN INDICATION
  5. LEVOTHROID [Concomitant]
     Indication: DRUG USE FOR UNKNOWN INDICATION
  6. ESTRADIOL [Concomitant]
     Indication: DRUG USE FOR UNKNOWN INDICATION
  7. XANAX [Concomitant]
     Indication: DRUG USE FOR UNKNOWN INDICATION
  8. PAXIL CR [Concomitant]
     Indication: DRUG USE FOR UNKNOWN INDICATION
  9. HYDROCODONE [Concomitant]
     Indication: DRUG USE FOR UNKNOWN INDICATION
  10. LASIX [Concomitant]
     Indication: DRUG USE FOR UNKNOWN INDICATION

REACTIONS (4)
  - MEDICATION ERROR [None]
  - OVERDOSE [None]
  - UNEXPECTED THERAPEUTIC DRUG EFFECT [None]
  - VAGINAL HAEMORRHAGE [None]
